FAERS Safety Report 17915949 (Version 1)
Quarter: 2020Q2

REPORT INFORMATION
  Report Type: Spontaneous
  Country: US (occurrence: US)
  Receive Date: 20200618
  Receipt Date: 20200618
  Transmission Date: 20200714
  Serious: No
  Sender: FDA-Public Use
  Company Number: None

PATIENT
  Age: 66 Year
  Sex: Male
  Weight: 85.8 kg

DRUGS (11)
  1. COREG [Concomitant]
     Active Substance: CARVEDILOL
     Dates: start: 20200605, end: 20200605
  2. ZINC. [Concomitant]
     Active Substance: ZINC
     Dates: start: 20200605, end: 20200610
  3. ALBUMIN 25% [Concomitant]
     Active Substance: ALBUMIN HUMAN
     Dates: start: 20200607, end: 20200607
  4. REMDESIVIR. [Suspect]
     Active Substance: REMDESIVIR
     Indication: COVID-19
     Route: 041
     Dates: start: 20200605, end: 20200608
  5. LISINOPRIL. [Concomitant]
     Active Substance: LISINOPRIL
     Dates: start: 20200605, end: 20200605
  6. ENOXAPARIN [Concomitant]
     Active Substance: ENOXAPARIN
     Dates: start: 20200605, end: 20200607
  7. NS [Concomitant]
     Active Substance: SODIUM CHLORIDE
     Dates: start: 20200607, end: 20200610
  8. FENTANYL. [Concomitant]
     Active Substance: FENTANYL
     Dates: start: 20200605, end: 20200610
  9. PROPOFOL. [Concomitant]
     Active Substance: PROPOFOL
     Dates: start: 20200605
  10. FUROSEMIDE. [Concomitant]
     Active Substance: FUROSEMIDE
     Dates: start: 20200605, end: 20200606
  11. AZITHROMYCIN ANHYDROUS. [Concomitant]
     Active Substance: AZITHROMYCIN ANHYDROUS
     Dates: start: 20200607, end: 20200609

REACTIONS (2)
  - Blood creatine increased [None]
  - Dialysis [None]

NARRATIVE: CASE EVENT DATE: 20200608
